FAERS Safety Report 6934198-8 (Version None)
Quarter: 2010Q3

REPORT INFORMATION
  Report Type: 
  Country: None (occurrence: None)
  Receive Date: 20100820
  Receipt Date: 20100817
  Transmission Date: 20110219
  Serious: Yes (Other)
  Sender: FDA-Public Use
  Company Number: US-SANOFI-AVENTIS-2010SA049031

PATIENT
  Age: 18 Year
  Sex: Male

DRUGS (3)
  1. LANTUS [Suspect]
     Indication: TYPE 1 DIABETES MELLITUS
     Dosage: DOSE:28 UNIT(S)
     Route: 058
     Dates: start: 20050101
  2. LANTUS [Suspect]
     Dosage: 10 UNITS IN THE MORNING AND 35 UNITS AT BEDTIME
     Route: 058
  3. HUMALOG [Concomitant]
     Indication: TYPE 1 DIABETES MELLITUS
     Dates: end: 20100815

REACTIONS (4)
  - ANXIETY [None]
  - CONVULSION [None]
  - EYE DISORDER [None]
  - MUSCLE TWITCHING [None]
